FAERS Safety Report 23932404 (Version 1)
Quarter: 2024Q2

REPORT INFORMATION
  Report Type: Spontaneous
  Country: US (occurrence: None)
  Receive Date: 20240531
  Receipt Date: 20240531
  Transmission Date: 20240716
  Serious: Yes (Life-Threatening)
  Sender: FDA-Public Use
  Company Number: None

PATIENT
  Age: 47 Year
  Sex: Male
  Weight: 81 kg

DRUGS (1)
  1. LUMASON [Suspect]
     Active Substance: SULFUR HEXAFLUORIDE
     Indication: Cerebrovascular accident
     Dates: start: 20240531, end: 20240531

REACTIONS (1)
  - Cardio-respiratory arrest [None]

NARRATIVE: CASE EVENT DATE: 20240531
